FAERS Safety Report 10596613 (Version 2)
Quarter: 2014Q4

REPORT INFORMATION
  Report Type: Spontaneous
  Country: US (occurrence: US)
  Receive Date: 20141120
  Receipt Date: 20141218
  Transmission Date: 20150529
  Serious: No
  Sender: FDA-Public Use
  Company Number: US-009507513-1411USA001189

PATIENT
  Age: 43 Year
  Sex: Female

DRUGS (3)
  1. NEXPLANON [Suspect]
     Active Substance: ETONOGESTREL
     Indication: CONTRACEPTION
     Dosage: 1 DF (1 SINGLE ROAD)
     Route: 059
     Dates: start: 20110419
  2. NEXPLANON [Suspect]
     Active Substance: ETONOGESTREL
     Dosage: 1 DF, (1 SINGLE ROAD)
     Route: 059
     Dates: start: 20141030
  3. NEXPLANON [Suspect]
     Active Substance: ETONOGESTREL
     Dosage: 1 DF, (1 SINGLE ROAD)
     Route: 059
     Dates: start: 20141030, end: 20141030

REACTIONS (3)
  - Discomfort [Recovered/Resolved]
  - Device deployment issue [Recovered/Resolved]
  - Medical device complication [Recovered/Resolved]

NARRATIVE: CASE EVENT DATE: 20141030
